FAERS Safety Report 11340116 (Version 1)
Quarter: 2015Q3

REPORT INFORMATION
  Report Type: Spontaneous
  Country: FR (occurrence: FR)
  Receive Date: 20150805
  Receipt Date: 20150805
  Transmission Date: 20151125
  Serious: Yes (Hospitalization)
  Sender: FDA-Public Use
  Company Number: FR-SA-2015SA113088

PATIENT
  Age: 92 Year
  Sex: Female

DRUGS (12)
  1. PLAVIX [Suspect]
     Active Substance: CLOPIDOGREL BISULFATE
     Indication: MYOCARDIAL INFARCTION
     Route: 048
     Dates: start: 2013, end: 20150524
  2. LASILIX [Concomitant]
     Active Substance: FUROSEMIDE
  3. KARDEGIC [Suspect]
     Active Substance: ASPIRIN LYSINE
     Indication: MYOCARDIAL INFARCTION
     Route: 048
     Dates: start: 2013, end: 20150524
  4. KALEORID [Suspect]
     Active Substance: POTASSIUM CHLORIDE
     Indication: HYPOKALAEMIA
     Dosage: PROLONGED RELEASE TABLET
     Route: 048
     Dates: end: 20150524
  5. SIMVASTATIN. [Concomitant]
     Active Substance: SIMVASTATIN
  6. SINGULAIR [Concomitant]
     Active Substance: MONTELUKAST SODIUM
  7. PROCORALAN [Concomitant]
     Active Substance: IVABRADINE
  8. EUPANTOL [Concomitant]
     Active Substance: PANTOPRAZOLE SODIUM
  9. FORLAX [Concomitant]
     Active Substance: POLYETHYLENE GLYCOL 4000
  10. SERESTA [Concomitant]
     Active Substance: OXAZEPAM
  11. ATACAND [Concomitant]
     Active Substance: CANDESARTAN CILEXETIL
  12. SYMBICORT [Concomitant]
     Active Substance: BUDESONIDE\FORMOTEROL FUMARATE DIHYDRATE

REACTIONS (5)
  - Anaemia [Recovered/Resolved]
  - Acute coronary syndrome [Recovering/Resolving]
  - Gastrointestinal haemorrhage [Recovering/Resolving]
  - Melaena [Recovering/Resolving]
  - Duodenal ulcer [Recovering/Resolving]

NARRATIVE: CASE EVENT DATE: 20150524
